FAERS Safety Report 9236459 (Version 1)
Quarter: 2013Q2

REPORT INFORMATION
  Report Type: Spontaneous
  Country: TW (occurrence: TW)
  Receive Date: 20130417
  Receipt Date: 20130417
  Transmission Date: 20140414
  Serious: Yes (Other)
  Sender: FDA-Public Use
  Company Number: PHHY2013TW035915

PATIENT
  Age: 85 Year
  Sex: 0

DRUGS (1)
  1. ATORVASTATIN [Suspect]
     Dosage: 05 MG, UNK

REACTIONS (4)
  - Traumatic lung injury [Recovering/Resolving]
  - Cough [Recovering/Resolving]
  - Dyspnoea [Recovering/Resolving]
  - Pyrexia [Recovering/Resolving]
